FAERS Safety Report 6283515-3 (Version None)
Quarter: 2009Q3

REPORT INFORMATION
  Report Type: 
  Country: None (occurrence: None)
  Receive Date: 20090724
  Receipt Date: 20090414
  Transmission Date: 20100115
  Serious: No
  Sender: FDA-Public Use
  Company Number: US-ALEXION-A200900317

PATIENT
  Sex: Female

DRUGS (10)
  1. SOLIRIS [Suspect]
     Indication: PAROXYSMAL NOCTURNAL HAEMOGLOBINURIA
     Dosage: 600 MG, SINGLE
     Route: 042
     Dates: start: 20080722, end: 20080722
  2. SOLIRIS [Suspect]
     Dosage: 900 MG, Q2W
     Route: 042
     Dates: start: 20080819
  3. SYNTHROID [Concomitant]
     Indication: HYPOTHYROIDISM
     Dosage: UNK
     Route: 048
  4. JANUVIA [Concomitant]
     Indication: DIABETES MELLITUS
     Dosage: UNK
     Route: 048
  5. HYZAAR                             /01284801/ [Concomitant]
     Indication: BLOOD PRESSURE ABNORMAL
     Dosage: UNK
     Route: 048
  6. PRANDIN                            /00882701/ [Concomitant]
     Indication: DIABETES MELLITUS
     Dosage: UNK
     Route: 048
  7. FOLIC ACID [Concomitant]
     Indication: PAROXYSMAL NOCTURNAL HAEMOGLOBINURIA
     Dosage: UNK
     Route: 048
  8. IRON [Concomitant]
     Dosage: UNK
     Route: 048
  9. LIPITOR [Concomitant]
     Indication: BLOOD CHOLESTEROL ABNORMAL
     Dosage: UNK
     Route: 048
  10. ASPIRIN [Concomitant]
     Indication: CARDIAC DISORDER
     Dosage: 81 MG, UNK
     Route: 048

REACTIONS (2)
  - COUGH [None]
  - SINUS CONGESTION [None]
